FAERS Safety Report 7787195-7 (Version None)
Quarter: 2011Q3

REPORT INFORMATION
  Report Type: 
  Country: None (occurrence: None)
  Receive Date: 20110929
  Receipt Date: 20110926
  Transmission Date: 20111222
  Serious: No
  Sender: FDA-Public Use
  Company Number: US-PFIZER INC-2011228766

PATIENT
  Sex: Female
  Weight: 81.633 kg

DRUGS (11)
  1. HUMIRA [Suspect]
     Dosage: 4 MG, UNK (40 MG, 1 IN 10 D)
     Dates: start: 20110401
  2. CITALOPRAM [Concomitant]
     Indication: FIBROMYALGIA
     Dosage: UNK
  3. MEFENAMIC ACID [Suspect]
     Indication: NECK PAIN
  4. MEFENAMIC ACID [Suspect]
     Indication: MUSCULOSKELETAL PAIN
  5. HUMIRA [Suspect]
     Indication: PSORIATIC ARTHROPATHY
     Dosage: 40 MG, UNK
     Dates: start: 20010101, end: 20100101
  6. LEVOTHYROXINE SODIUM [Concomitant]
     Indication: HYPOTHYROIDISM
     Dosage: UNK
  7. CLONAZEPAM [Concomitant]
     Indication: RESTLESS LEGS SYNDROME
     Dosage: UNK
  8. CLONAZEPAM [Concomitant]
     Indication: ANXIETY
  9. ENBREL [Suspect]
     Indication: PSORIATIC ARTHROPATHY
     Dosage: UNK
     Dates: start: 20100801, end: 20101001
  10. IBUPROFEN (ADVIL) [Suspect]
     Dosage: UNK
  11. MEFENAMIC ACID [Suspect]
     Indication: BACK PAIN
     Dosage: UNK

REACTIONS (12)
  - INJECTION SITE NODULE [None]
  - INJECTION SITE HAEMATOMA [None]
  - ABDOMINAL PAIN UPPER [None]
  - MALAISE [None]
  - FLUSHING [None]
  - PYREXIA [None]
  - MUSCULOSKELETAL PAIN [None]
  - DECREASED APPETITE [None]
  - INJECTION SITE HAEMORRHAGE [None]
  - FIBROMYALGIA [None]
  - FUNGAL INFECTION [None]
  - BLOOD URINE PRESENT [None]
